FAERS Safety Report 14741124 (Version 1)
Quarter: 2018Q2

REPORT INFORMATION
  Report Type: Spontaneous
  Country: TR (occurrence: TR)
  Receive Date: 20180410
  Receipt Date: 20180410
  Transmission Date: 20180711
  Serious: Yes (Life-Threatening, Hospitalization, Other)
  Sender: FDA-Public Use
  Company Number: TR-NATCO PHARMA-2018NAT00110

PATIENT
  Age: 78 Year
  Sex: Female

DRUGS (4)
  1. OSELTAMIVIR PHOSPHATE. [Suspect]
     Active Substance: OSELTAMIVIR PHOSPHATE
     Indication: MALAISE
     Dosage: 150 MG, 1X/DAY
     Route: 065
  2. OSELTAMIVIR PHOSPHATE. [Suspect]
     Active Substance: OSELTAMIVIR PHOSPHATE
     Indication: COUGH
  3. OSELTAMIVIR PHOSPHATE. [Suspect]
     Active Substance: OSELTAMIVIR PHOSPHATE
     Indication: ASTHENIA
  4. OSELTAMIVIR PHOSPHATE. [Suspect]
     Active Substance: OSELTAMIVIR PHOSPHATE
     Indication: ARTHRALGIA

REACTIONS (4)
  - Bundle branch block right [Recovered/Resolved]
  - Supraventricular extrasystoles [Recovered/Resolved]
  - Sinus arrest [Recovered/Resolved]
  - Bradycardia [Recovered/Resolved]
